FAERS Safety Report 5793288-6 (Version None)
Quarter: 2008Q2

REPORT INFORMATION
  Report Type: 
  Country: None (occurrence: None)
  Receive Date: 20080626
  Receipt Date: 20080626
  Transmission Date: 20081010
  Serious: No
  Sender: FDA-Public Use
  Company Number: None

PATIENT
  Age: 32 Year
  Sex: Male
  Weight: 83.5 kg

DRUGS (1)
  1. MORPHINE [Suspect]
     Indication: SURGERY
     Dosage: 2MG X1 IVP
     Route: 042
     Dates: start: 20080303

REACTIONS (3)
  - ERYTHEMA [None]
  - PRURITUS [None]
  - URTICARIA [None]
